FAERS Safety Report 11281395 (Version 3)
Quarter: 2015Q3

REPORT INFORMATION
  Report Type: Spontaneous
  Country: US (occurrence: US)
  Receive Date: 20150717
  Receipt Date: 20150827
  Transmission Date: 20151125
  Serious: Yes (Hospitalization, Other)
  Sender: FDA-Public Use
  Company Number: US-PFIZER INC-2015226728

PATIENT
  Age: 60 Year
  Sex: Male
  Weight: 81.63 kg

DRUGS (39)
  1. VFEND [Interacting]
     Active Substance: VORICONAZOLE
     Dosage: 200 MG, 2X/DAY
     Route: 048
     Dates: start: 201401
  2. PRAVACHOL [Interacting]
     Active Substance: PRAVASTATIN SODIUM
     Dosage: 0.5 DF, UNK
     Route: 048
  3. PROVENTIL /00139501/ [Concomitant]
     Indication: WHEEZING
     Dosage: 2.5 MG, AS NEEDED EVERY 4 HOURS
     Dates: start: 20141222
  4. ATIVAN [Concomitant]
     Active Substance: LORAZEPAM
     Indication: ANXIETY
     Dosage: 1 MG, AS NEEDED DAILY
     Route: 048
     Dates: start: 20141204, end: 20150103
  5. METOPROLOL [Concomitant]
     Active Substance: METOPROLOL
     Indication: BLOOD PRESSURE MEASUREMENT
  6. NOVOLIN N [Concomitant]
     Active Substance: INSULIN HUMAN
     Indication: DIABETES MELLITUS
     Dosage: 30 IU, DAILY
     Route: 058
  7. DESYREL [Concomitant]
     Active Substance: TRAZODONE HYDROCHLORIDE
     Dosage: 50 MG, UNK
     Route: 048
     Dates: start: 20141231, end: 20150130
  8. MSIR [Concomitant]
     Active Substance: MORPHINE SULFATE
     Dosage: 15 MG, AS NEEDED EVERY 6 HOURS
     Route: 048
     Dates: start: 20141204, end: 20150103
  9. ZYRTEC [Concomitant]
     Active Substance: CETIRIZINE HYDROCHLORIDE
     Indication: HYPERSENSITIVITY
     Dosage: 10 MG, AS NEEDED DAILY
     Route: 048
  10. CELEXA [Concomitant]
     Active Substance: CITALOPRAM HYDROBROMIDE
     Indication: ANXIETY
     Dosage: 40 MG, 1X/DAY
     Route: 048
  11. CELEXA [Concomitant]
     Active Substance: CITALOPRAM HYDROBROMIDE
     Indication: DEPRESSION
  12. ECOTRIN [Concomitant]
     Active Substance: ASPIRIN
     Indication: CARDIAC OPERATION
     Dosage: 81 MG, 1X/DAY
     Route: 048
  13. DELTASONE [Concomitant]
     Active Substance: PREDNISONE
     Indication: LUNG DISORDER
     Dosage: UNK, 2X/DAY
     Route: 048
     Dates: start: 20141231, end: 20150110
  14. HUMULIN R [Concomitant]
     Active Substance: INSULIN HUMAN
     Indication: DIABETES MELLITUS
     Dosage: 5 IU, 3X/DAY
     Route: 058
  15. GLUCOPHAGE [Concomitant]
     Active Substance: METFORMIN HYDROCHLORIDE
     Indication: DIABETES MELLITUS
     Dosage: 500 MG, 2X/DAY
     Route: 048
  16. PROVENTIL /00139501/ [Concomitant]
     Indication: DYSPNOEA
  17. VITAMIN B12 [Concomitant]
     Active Substance: CYANOCOBALAMIN
     Dosage: 1000 ?G, DAILY
     Route: 048
     Dates: start: 20140915
  18. DELTASONE [Concomitant]
     Active Substance: PREDNISONE
     Indication: ARTHRITIS
     Dosage: 15 MG, DAILY
     Route: 048
  19. PRAVACHOL [Interacting]
     Active Substance: PRAVASTATIN SODIUM
     Dosage: 40 MG, DAILY (EACH EVENING)
     Route: 048
     Dates: start: 20141222
  20. LEVOTHROID [Concomitant]
     Active Substance: LEVOTHYROXINE SODIUM
     Indication: HYPOTHYROIDISM
     Dosage: 75 ?G, DAILY
     Route: 048
  21. MOBIC [Concomitant]
     Active Substance: MELOXICAM
     Dosage: 15 MG, AS NEEDED DAILY
     Route: 048
     Dates: start: 20140903
  22. NITROSTAT [Concomitant]
     Active Substance: NITROGLYCERIN
     Dosage: 0.4 MG, AS NEEDED
     Route: 060
     Dates: start: 20130430
  23. METOPROLOL [Concomitant]
     Active Substance: METOPROLOL
     Indication: HEART RATE IRREGULAR
     Dosage: 25 MG, DAILY (1/2 TABLET TWICE DAILY)
     Route: 048
  24. AZULFIDINE [Concomitant]
     Active Substance: SULFASALAZINE
     Indication: ARTHRITIS
     Dosage: 2 DF, 2X/DAY
     Route: 048
  25. MUCINEX [Concomitant]
     Active Substance: GUAIFENESIN
     Dosage: 600 MG, 2X/DAY
     Route: 048
     Dates: start: 20141231, end: 20150130
  26. VFEND [Interacting]
     Active Substance: VORICONAZOLE
     Dosage: 200 MG, 1X/DAY
     Route: 048
  27. AZULFIDINE [Concomitant]
     Active Substance: SULFASALAZINE
     Dosage: 1 DF, 2X/DAY
     Route: 048
  28. PRILOSEC [Interacting]
     Active Substance: OMEPRAZOLE MAGNESIUM
     Indication: REFLUX GASTRITIS
     Dosage: 40 MG, DAILY
     Route: 048
     Dates: start: 20140925
  29. SYNTHROID [Concomitant]
     Active Substance: LEVOTHYROXINE SODIUM
     Indication: HYPOTHYROIDISM
     Dosage: 75 ?G, 1X/DAY
     Route: 048
     Dates: start: 20140925
  30. COZAAR [Concomitant]
     Active Substance: LOSARTAN POTASSIUM
     Indication: HYPERTENSION
     Dosage: 50 MG, 2X/DAY (ONE IN MORNING AND AT BEDTIME)
     Route: 048
  31. ZOFRAN [Concomitant]
     Active Substance: ONDANSETRON HYDROCHLORIDE
     Indication: NAUSEA
     Dosage: 4 MG, AS NEEDED EVERY 6 HOURS
     Route: 048
  32. VIBRAMYCIN /00055701/ [Concomitant]
     Dosage: 100 MG, 2X/DAY
     Route: 048
  33. DELTASONE [Concomitant]
     Active Substance: PREDNISONE
     Indication: ARTHROPATHY
  34. ECOTRIN [Concomitant]
     Active Substance: ASPIRIN
     Indication: ANTICOAGULANT THERAPY
  35. NOVOLIN R [Concomitant]
     Active Substance: INSULIN HUMAN
     Indication: DIABETES MELLITUS
     Dosage: 5 IU, 3X/DAY
     Route: 058
  36. VFEND [Suspect]
     Active Substance: VORICONAZOLE
     Indication: BRONCHOPULMONARY ASPERGILLOSIS
     Dosage: 200 MG, 2X/DAY ( ONCE IN THE MORNING AND ONCE AT NIGHT)
     Route: 048
  37. MS CONTIN [Concomitant]
     Active Substance: MORPHINE SULFATE
     Dosage: 30 MG, 2X/DAY
     Route: 048
     Dates: start: 20141204
  38. PROMETHAZINE HCL [Concomitant]
     Active Substance: PROMETHAZINE HYDROCHLORIDE
     Indication: COUGH
     Dosage: 12.5 MG, AS NEEDED EVERY 8 HOURS
     Route: 048
  39. FLONASE [Concomitant]
     Active Substance: FLUTICASONE PROPIONATE
     Indication: RHINITIS
     Dosage: 1 SPRAY INTO EACH NOSTRIL 2 TIMES DAILY AS NEEDED
     Route: 045
     Dates: start: 20140925

REACTIONS (17)
  - Malaise [Unknown]
  - Cough [Not Recovered/Not Resolved]
  - Hyperhidrosis [Unknown]
  - Feeling abnormal [Not Recovered/Not Resolved]
  - Labelled drug-drug interaction medication error [Unknown]
  - Hallucination [Recovered/Resolved]
  - Pain [Unknown]
  - Condition aggravated [Unknown]
  - Dyspnoea [Recovered/Resolved]
  - Drug level increased [Unknown]
  - Respiratory tract infection [Unknown]
  - Asthenia [Not Recovered/Not Resolved]
  - Heart rate decreased [Unknown]
  - Headache [Unknown]
  - Hallucination, visual [Recovered/Resolved]
  - Drug interaction [Unknown]
  - Pyrexia [Unknown]

NARRATIVE: CASE EVENT DATE: 20141222
